FAERS Safety Report 5352800-1 (Version None)
Quarter: 2007Q2

REPORT INFORMATION
  Report Type: 
  Country: None (occurrence: None)
  Receive Date: 20070611
  Receipt Date: 20070530
  Transmission Date: 20071010
  Serious: Yes (Other)
  Sender: FDA-Public Use
  Company Number: GB-GILEAD-2006-0010825

PATIENT
  Sex: Female
  Weight: 65.35 kg

DRUGS (3)
  1. TRUVADA [Suspect]
     Route: 048
     Dates: start: 20060604
  2. EFAVIRENZ [Concomitant]
     Indication: HIV INFECTION
     Route: 048
     Dates: start: 20060604
  3. CO-TRIMOXAZOLE [Concomitant]
     Indication: PROPHYLAXIS
     Route: 048
     Dates: start: 20060404

REACTIONS (3)
  - BREAST ATROPHY [None]
  - CASTLEMAN'S DISEASE [None]
  - WEIGHT INCREASED [None]
